FAERS Safety Report 12892854 (Version 4)
Quarter: 2017Q1

REPORT INFORMATION
  Report Type: Report from Study
  Country: IT (occurrence: IT)
  Receive Date: 20161028
  Receipt Date: 20170317
  Transmission Date: 20170428
  Serious: Yes (Hospitalization, Other)
  Sender: FDA-Public Use
  Company Number: IT-BRISTOL-MYERS SQUIBB COMPANY-BMS-2016-089661

PATIENT
  Age: 40 Year
  Sex: Male

DRUGS (4)
  1. NIVOLUMAB [Suspect]
     Active Substance: NIVOLUMAB
     Indication: NON-SMALL CELL LUNG CANCER
     Dosage: 3 MG/KG, UNK
     Route: 042
     Dates: start: 20150731
  2. PANTOPRAZOLO [Concomitant]
     Active Substance: PANTOPRAZOLE SODIUM
     Indication: PRODUCT USED FOR UNKNOWN INDICATION
     Route: 065
  3. SUCRALFATO [Concomitant]
     Active Substance: SUCRALFATE
     Indication: PRODUCT USED FOR UNKNOWN INDICATION
     Dosage: UNK, TID
     Route: 065
  4. RIOPAN                             /00141701/ [Concomitant]
     Active Substance: MAGALDRATE
     Indication: PRODUCT USED FOR UNKNOWN INDICATION
     Dosage: UNK, BID
     Route: 065

REACTIONS (24)
  - Hyperthyroidism [Recovered/Resolved]
  - Diarrhoea [Recovered/Resolved]
  - Constipation [Recovering/Resolving]
  - Dyspnoea [Unknown]
  - Malignant neoplasm progression [Unknown]
  - Vomiting [Recovered/Resolved]
  - Chest pain [Unknown]
  - Somnolence [Unknown]
  - Decreased appetite [Recovered/Resolved]
  - Nausea [Recovered/Resolved]
  - Myalgia [Unknown]
  - Hyponatraemia [Unknown]
  - Haemoptysis [Unknown]
  - Sepsis [Unknown]
  - Pyrexia [Recovered/Resolved]
  - Musculoskeletal pain [Unknown]
  - Oedema peripheral [Unknown]
  - Fatigue [Unknown]
  - Oesophagitis [Recovering/Resolving]
  - Asthenia [Recovered/Resolved]
  - Local swelling [Unknown]
  - Balanoposthitis [Unknown]
  - Tooth abscess [Recovered/Resolved]
  - Lymphadenopathy [Unknown]

NARRATIVE: CASE EVENT DATE: 20151014
